FAERS Safety Report 10538321 (Version 3)
Quarter: 2015Q1

REPORT INFORMATION
  Report Type: Spontaneous
  Country: US (occurrence: US)
  Receive Date: 20141023
  Receipt Date: 20150108
  Transmission Date: 20150720
  Serious: Yes (Hospitalization, Other)
  Sender: FDA-Public Use
  Company Number: US-TEVA-517405USA

PATIENT
  Age: 27 Year
  Sex: Female

DRUGS (2)
  1. ALBUTEROL. [Concomitant]
     Active Substance: ALBUTEROL
     Indication: PRODUCT USED FOR UNKNOWN INDICATION
  2. PARAGARD T 380A [Suspect]
     Active Substance: COPPER
     Indication: CONTRACEPTION
     Route: 015
     Dates: start: 200911, end: 20141015

REACTIONS (10)
  - Pain [Unknown]
  - Crying [Unknown]
  - Muscle spasms [Unknown]
  - Device breakage [Recovered/Resolved]
  - Emotional distress [Unknown]
  - Pelvic pain [Unknown]
  - Device dislocation [Recovered/Resolved]
  - Dyspareunia [Unknown]
  - Back pain [Unknown]
  - Embedded device [Recovered/Resolved]

NARRATIVE: CASE EVENT DATE: 20141015
